FAERS Safety Report 15851630 (Version 1)
Quarter: 2019Q1

REPORT INFORMATION
  Report Type: Spontaneous
  Country: US (occurrence: US)
  Receive Date: 20190122
  Receipt Date: 20190122
  Transmission Date: 20190417
  Serious: Yes (Other)
  Sender: FDA-Public Use
  Company Number: US-ELI_LILLY_AND_COMPANY-US201901006768

PATIENT
  Sex: Female

DRUGS (13)
  1. ACETAMINOPHEN. [Concomitant]
     Active Substance: ACETAMINOPHEN
     Indication: PAIN
     Dosage: 650 MG, EVERY 6 HRS AS NEEDED
     Route: 048
     Dates: start: 20160610
  2. COMPAZINE [Concomitant]
     Active Substance: PROCHLORPERAZINE MALEATE
     Indication: VOMITING
  3. ZOFRAN [Concomitant]
     Active Substance: ONDANSETRON HYDROCHLORIDE
     Indication: VOMITING
  4. ALBUTEROL HFA [Concomitant]
     Active Substance: ALBUTEROL SULFATE
     Indication: WHEEZING
     Dosage: 8.5 G, ONE OR TWO PUFFS EVERY 4 HOURS AS NEEDE
     Route: 055
  5. BOSWELLIA SERRATA;GLUCOSAMINE [Concomitant]
     Indication: OSTEOARTHRITIS
     Dosage: 2 DF, DAILY
     Route: 048
  6. EMLA [LIDOCAINE HYDROCHLORIDE;PRILOCAINE HYDR [Concomitant]
     Indication: APPLICATION SITE ANAESTHESIA
     Dosage: 2.5-2.5%, AS NEEDED
     Route: 061
  7. ALIMTA [Suspect]
     Active Substance: PEMETREXED DISODIUM
     Indication: LUNG NEOPLASM MALIGNANT
     Dosage: UNK, CYCLICAL
     Route: 065
     Dates: end: 201701
  8. EPIPEN [Concomitant]
     Active Substance: EPINEPHRINE
     Indication: HYPERSENSITIVITY
     Dosage: 0.3 ML, ONCE AS NEEDED
     Route: 030
  9. ZOFRAN [Concomitant]
     Active Substance: ONDANSETRON HYDROCHLORIDE
     Indication: NAUSEA
     Dosage: 8 MG, EVERY 8 HRS AS NEEDED
     Route: 048
     Dates: start: 20160812, end: 20170830
  10. CRANBERRY + C [Concomitant]
     Indication: NUTRITIONAL SUPPLEMENTATION
     Dosage: 140-100-3 MG PER UNIT, DAILY
     Route: 048
     Dates: start: 20181006
  11. BENADRYL [Concomitant]
     Active Substance: DIPHENHYDRAMINE HYDROCHLORIDE
     Indication: PRURITUS
     Dosage: 25 MG, EVERY 6 HRS AS NEEDED
     Route: 048
     Dates: start: 20160610
  12. PROZAC [Concomitant]
     Active Substance: FLUOXETINE HYDROCHLORIDE
     Indication: DEPRESSION
     Dosage: 20 MG, DAILY
     Route: 048
     Dates: start: 20161006
  13. COMPAZINE [Concomitant]
     Active Substance: PROCHLORPERAZINE MALEATE
     Indication: NAUSEA
     Dosage: 10 MG, MAXIMUM 4MG DAILY
     Route: 048
     Dates: start: 20161006

REACTIONS (1)
  - Malignant neoplasm progression [Unknown]
